FAERS Safety Report 15600718 (Version 1)
Quarter: 2018Q4

REPORT INFORMATION
  Report Type: Report from Study
  Country: DE (occurrence: DE)
  Receive Date: 20181109
  Receipt Date: 20181109
  Transmission Date: 20190205
  Serious: Yes (Hospitalization)
  Sender: FDA-Public Use
  Company Number: DE-INCYTE CORPORATION-2018IN011385

PATIENT

DRUGS (7)
  1. EPOETIN ALFA [Concomitant]
     Active Substance: ERYTHROPOIETIN
     Indication: MYELOFIBROSIS
     Dosage: 30000 OT, QW
     Route: 065
     Dates: start: 20170807
  2. LITALIR [Concomitant]
     Active Substance: HYDROXYUREA
     Indication: MYELOFIBROSIS
     Dosage: 1500 MG, QD
     Route: 065
     Dates: start: 20160907, end: 20161116
  3. INCB018424 [Suspect]
     Active Substance: RUXOLITINIB
     Dosage: 10 MG, QD
     Route: 048
     Dates: start: 20160907
  4. INCB018424 [Suspect]
     Active Substance: RUXOLITINIB
     Dosage: 40 MG, QD
     Route: 048
     Dates: start: 20160825
  5. LITALIR [Concomitant]
     Active Substance: HYDROXYUREA
     Dosage: 1500 MG, QD
     Route: 065
     Dates: start: 20170518
  6. LITALIR [Concomitant]
     Active Substance: HYDROXYUREA
     Dosage: 1000 MG, QD
     Route: 065
     Dates: start: 20161117, end: 20170517
  7. INCB018424 [Suspect]
     Active Substance: RUXOLITINIB
     Indication: PRIMARY MYELOFIBROSIS
     Dosage: 20 MG, QD
     Route: 048
     Dates: start: 20160714, end: 20160824

REACTIONS (1)
  - Pulmonary haemorrhage [Recovered/Resolved]

NARRATIVE: CASE EVENT DATE: 20180404
